FAERS Safety Report 8458957-8 (Version None)
Quarter: 2012Q2

REPORT INFORMATION
  Report Type: 
  Country: None (occurrence: None)
  Receive Date: 20120622
  Receipt Date: 20120613
  Transmission Date: 20120825
  Serious: Yes (Hospitalization, Other)
  Sender: FDA-Public Use
  Company Number: JP-ROCHE-1058966

PATIENT
  Sex: Male

DRUGS (13)
  1. RANIBIZUMAB [Suspect]
     Route: 050
     Dates: start: 20100825
  2. LEVOFLOXACIN [Concomitant]
     Dates: start: 20091201, end: 20100801
  3. RANIBIZUMAB [Suspect]
     Route: 050
     Dates: start: 20111018
  4. RANIBIZUMAB [Suspect]
     Route: 050
     Dates: start: 20110428
  5. TOUGHMAC E [Concomitant]
     Dates: start: 20110206
  6. RANIBIZUMAB [Suspect]
     Route: 050
     Dates: start: 20100217
  7. RANIBIZUMAB [Suspect]
     Indication: AGE-RELATED MACULAR DEGENERATION
     Route: 050
     Dates: start: 20091216
  8. RANIBIZUMAB [Suspect]
     Route: 050
     Dates: start: 20100510
  9. RANIBIZUMAB [Suspect]
     Route: 050
     Dates: start: 20101124
  10. MOXIFLOXACIN HYDROCHLORIDE [Concomitant]
     Dates: start: 20101101, end: 20111001
  11. RABEPRAZOLE SODIUM [Concomitant]
     Dates: start: 20101126
  12. RANIBIZUMAB [Suspect]
     Route: 050
     Dates: start: 20100114
  13. CLOSTRIDIUM BUTYRICUM [Concomitant]
     Dates: start: 20110206

REACTIONS (2)
  - LYMPHADENOPATHY [None]
  - GASTRIC CANCER [None]
